FAERS Safety Report 15109165 (Version 1)
Quarter: 2018Q3

REPORT INFORMATION
  Report Type: Report from Study
  Country: US (occurrence: US)
  Receive Date: 20180705
  Receipt Date: 20180705
  Transmission Date: 20181010
  Serious: Yes (Other)
  Sender: FDA-Public Use
  Company Number: US-TEVA-2018-US-902831

PATIENT
  Age: 18 Year
  Sex: Male

DRUGS (2)
  1. MYORISAN [Concomitant]
     Active Substance: ISOTRETINOIN
  2. CLARAVIS [Suspect]
     Active Substance: ISOTRETINOIN
     Route: 065
     Dates: start: 20180531

REACTIONS (2)
  - Depression [Unknown]
  - Autism spectrum disorder [Unknown]

NARRATIVE: CASE EVENT DATE: 20180531
